FAERS Safety Report 7980225-9 (Version None)
Quarter: 2011Q4

REPORT INFORMATION
  Report Type: 
  Country: None (occurrence: None)
  Receive Date: 20111214
  Receipt Date: 20111207
  Transmission Date: 20120403
  Serious: Yes (Hospitalization, Other)
  Sender: FDA-Public Use
  Company Number: CA-AMGEN-CANSP2011040749

PATIENT
  Age: 69 Year
  Sex: Female

DRUGS (3)
  1. WARFARIN SODIUM [Concomitant]
     Dosage: UNK
  2. ENBREL [Suspect]
     Indication: RHEUMATOID ARTHRITIS
     Dosage: 50 MG, QWK
     Route: 058
     Dates: start: 20101103
  3. METHOTREXATE [Concomitant]
     Dosage: 25 MG, QWK
     Route: 048
     Dates: start: 20100301

REACTIONS (6)
  - HYPERTENSION [None]
  - LEFT VENTRICULAR DYSFUNCTION [None]
  - PLEURAL EFFUSION [None]
  - FATIGUE [None]
  - STRESS CARDIOMYOPATHY [None]
  - BRONCHITIS [None]
